FAERS Safety Report 20861163 (Version 1)
Quarter: 2022Q2

REPORT INFORMATION
  Report Type: Spontaneous
  Country: US (occurrence: US)
  Receive Date: 20220523
  Receipt Date: 20220523
  Transmission Date: 20220721
  Serious: No
  Sender: FDA-Public Use
  Company Number: US-PFIZER INC-202200677225

PATIENT
  Age: 58 Year
  Sex: Male

DRUGS (1)
  1. SIROLIMUS [Suspect]
     Active Substance: SIROLIMUS
     Indication: Renal transplant
     Dosage: 0.5 MG, DAILY
     Route: 048
     Dates: start: 202106

REACTIONS (2)
  - Dizziness [Unknown]
  - Nausea [Unknown]
